FAERS Safety Report 4326499-7 (Version None)
Quarter: 2004Q1

REPORT INFORMATION
  Report Type: 
  Country: None (occurrence: None)
  Receive Date: 20040329
  Receipt Date: 20040329
  Transmission Date: 20041129
  Serious: Yes (Other)
  Sender: FDA-Public Use
  Company Number: None

PATIENT
  Age: 49 Year
  Sex: Female
  Weight: 65.7716 kg

DRUGS (1)
  1. LORATADINE [Suspect]
     Dosage: ONE TABLET DAILY ORAL
     Route: 048
     Dates: start: 20040324, end: 20040328

REACTIONS (2)
  - DRUG INEFFECTIVE [None]
  - PHARMACEUTICAL PRODUCT COMPLAINT [None]
